FAERS Safety Report 11623000 (Version 1)
Quarter: 2015Q4

REPORT INFORMATION
  Report Type: Spontaneous
  Country: US (occurrence: US)
  Receive Date: 20151013
  Receipt Date: 20151013
  Transmission Date: 20160304
  Serious: No
  Sender: FDA-Public Use
  Company Number: US-JNJFOC-20150404473

PATIENT
  Sex: Female

DRUGS (2)
  1. EXTRA STRENGTH ACETAMINOPHEN [Concomitant]
     Active Substance: ACETAMINOPHEN
     Indication: ORAL PAIN
     Route: 065
  2. TYLENOL EXTRA STRENGTH [Suspect]
     Active Substance: ACETAMINOPHEN
     Indication: ORAL PAIN
     Dosage: 2 CAPLETS, 2- 3X PER DAY AS NEEDED
     Route: 048

REACTIONS (3)
  - Product use issue [Unknown]
  - Drug administration error [Unknown]
  - Liver function test abnormal [Unknown]
